FAERS Safety Report 19755922 (Version 1)
Quarter: 2021Q3

REPORT INFORMATION
  Report Type: Report from Study
  Country: US (occurrence: US)
  Receive Date: 20210827
  Receipt Date: 20210827
  Transmission Date: 20211014
  Serious: Yes (Hospitalization, Disabling)
  Sender: FDA-Public Use
  Company Number: US-TAKEDA-US201822430

PATIENT
  Age: 75 Year
  Sex: Female
  Weight: 65 kg

DRUGS (20)
  1. TEDUGLUTIDE [Suspect]
     Active Substance: TEDUGLUTIDE
     Indication: SHORT-BOWEL SYNDROME
     Dosage: 3.2 MILLIGRAM (0.05 MILLIGRAM/KILOGRAM DAILY DOSE), 7 DOSES PER WEEK
     Route: 065
     Dates: start: 20170110, end: 20170913
  2. OPIUM TINCTURE [Concomitant]
     Active Substance: MORPHINE
     Indication: DIARRHOEA
  3. TEDUGLUTIDE [Suspect]
     Active Substance: TEDUGLUTIDE
     Dosage: 1.6 MILLIGRAM (0.02 MILLIGRAM/KILOGRAM DAILY DOSE), 4 DOSES PER WEEK
     Route: 065
     Dates: start: 20180130, end: 20180608
  4. TEDUGLUTIDE [Suspect]
     Active Substance: TEDUGLUTIDE
     Dosage: 1.6 MILLIGRAM (0.02 MILLIGRAM/KILOGRAM DAILY DOSE), 4 DOSES PER WEEK
     Route: 065
     Dates: start: 20180130, end: 20180608
  5. TEDUGLUTIDE [Suspect]
     Active Substance: TEDUGLUTIDE
     Dosage: 1.6 MILLIGRAM (0.02 MILLIGRAM/KILOGRAM DAILY DOSE), 4 DOSES PER WEEK
     Route: 065
     Dates: start: 20180608
  6. TEDUGLUTIDE [Suspect]
     Active Substance: TEDUGLUTIDE
     Dosage: 1.6 MILLIGRAM (0.02 MILLIGRAM/KILOGRAM DAILY DOSE), 4 DOSES PER WEEK
     Route: 065
     Dates: start: 20180608
  7. TEDUGLUTIDE [Suspect]
     Active Substance: TEDUGLUTIDE
     Indication: SHORT-BOWEL SYNDROME
     Dosage: 3.2 MILLIGRAM (0.05 MILLIGRAM/KILOGRAM DAILY DOSE), 7 DOSES PER WEEK
     Route: 065
     Dates: start: 20170110, end: 20170913
  8. TEDUGLUTIDE [Suspect]
     Active Substance: TEDUGLUTIDE
     Dosage: 1.63 MILLIGRAM (0.02 MILLIGRAM/KILOGRAM), 7 DOSES PER WEEK
     Route: 065
     Dates: start: 20171012, end: 20180130
  9. TEDUGLUTIDE [Suspect]
     Active Substance: TEDUGLUTIDE
     Dosage: 1.6 MILLIGRAM (0.02 MILLIGRAM/KILOGRAM DAILY DOSE), 4 DOSES PER WEEK
     Route: 065
     Dates: start: 20180608
  10. TRAMADOL. [Concomitant]
     Active Substance: TRAMADOL
     Indication: NEURALGIA
  11. TEDUGLUTIDE [Suspect]
     Active Substance: TEDUGLUTIDE
     Dosage: 1.63 MILLIGRAM (0.02 MILLIGRAM/KILOGRAM), 7 DOSES PER WEEK
     Route: 065
     Dates: start: 20171012, end: 20180130
  12. TEDUGLUTIDE [Suspect]
     Active Substance: TEDUGLUTIDE
     Dosage: 1.6 MILLIGRAM (0.02 MILLIGRAM/KILOGRAM DAILY DOSE), 4 DOSES PER WEEK
     Route: 065
     Dates: start: 20180608
  13. TEDUGLUTIDE [Suspect]
     Active Substance: TEDUGLUTIDE
     Indication: SHORT-BOWEL SYNDROME
     Dosage: 3.2 MILLIGRAM (0.05 MILLIGRAM/KILOGRAM DAILY DOSE), 7 DOSES PER WEEK
     Route: 065
     Dates: start: 20170110, end: 20170913
  14. TEDUGLUTIDE [Suspect]
     Active Substance: TEDUGLUTIDE
     Indication: SHORT-BOWEL SYNDROME
     Dosage: 3.2 MILLIGRAM (0.05 MILLIGRAM/KILOGRAM DAILY DOSE), 7 DOSES PER WEEK
     Route: 065
     Dates: start: 20170110, end: 20170913
  15. TEDUGLUTIDE [Suspect]
     Active Substance: TEDUGLUTIDE
     Dosage: 1.63 MILLIGRAM (0.02 MILLIGRAM/KILOGRAM), 7 DOSES PER WEEK
     Route: 065
     Dates: start: 20171012, end: 20180130
  16. TEDUGLUTIDE [Suspect]
     Active Substance: TEDUGLUTIDE
     Dosage: 1.6 MILLIGRAM (0.02 MILLIGRAM/KILOGRAM DAILY DOSE), 4 DOSES PER WEEK
     Route: 065
     Dates: start: 20180130, end: 20180608
  17. TEDUGLUTIDE [Suspect]
     Active Substance: TEDUGLUTIDE
     Dosage: 1.63 MILLIGRAM (0.02 MILLIGRAM/KILOGRAM), 7 DOSES PER WEEK
     Route: 065
     Dates: start: 20171012, end: 20180130
  18. TEDUGLUTIDE [Suspect]
     Active Substance: TEDUGLUTIDE
     Dosage: 1.6 MILLIGRAM (0.02 MILLIGRAM/KILOGRAM DAILY DOSE), 4 DOSES PER WEEK
     Route: 065
     Dates: start: 20180130, end: 20180608
  19. CARVEDILOL. [Concomitant]
     Active Substance: CARVEDILOL
     Indication: HYPERTENSION
  20. OXYCODONE [Concomitant]
     Active Substance: OXYCODONE
     Indication: NEURALGIA

REACTIONS (4)
  - Blood urea increased [Not Recovered/Not Resolved]
  - Gastrointestinal stoma output abnormal [Not Recovered/Not Resolved]
  - Blood creatinine increased [Not Recovered/Not Resolved]
  - Chest pain [Recovered/Resolved]

NARRATIVE: CASE EVENT DATE: 20180427
